FAERS Safety Report 7639014-7 (Version None)
Quarter: 2011Q3

REPORT INFORMATION
  Report Type: 
  Country: None (occurrence: None)
  Receive Date: 20110727
  Receipt Date: 20110721
  Transmission Date: 20111222
  Serious: No
  Sender: FDA-Public Use
  Company Number: US-PFIZER INC-2011151920

PATIENT
  Sex: Male
  Weight: 100 kg

DRUGS (12)
  1. MULTI-VITAMINS [Concomitant]
     Dosage: UNK
  2. COZAAR [Concomitant]
     Indication: HYPERTENSION
     Dosage: 50 MG, 1X/DAY
  3. ZIAC [Concomitant]
     Dosage: UNK
  4. LIPITOR [Concomitant]
     Dosage: UNK
  5. PLAVIX [Concomitant]
     Dosage: 75 MG, 1X/DAY
  6. CHANTIX [Suspect]
     Dosage: 0.5 MG, 1X/DAY
     Route: 048
     Dates: start: 20110601
  7. ASPIRIN [Concomitant]
     Indication: PAIN
     Dosage: 325 MG, 2X/DAY
  8. PRAVACHOL [Concomitant]
     Indication: BLOOD CHOLESTEROL ABNORMAL
     Dosage: 80 MG, 1X/DAY
  9. COZAAR [Concomitant]
     Dosage: 100 MG, UNK
  10. PLAVIX [Concomitant]
     Dosage: UNK
  11. PLETAL [Concomitant]
     Dosage: UNK
  12. CHANTIX [Suspect]
     Indication: SMOKING CESSATION THERAPY
     Dosage: 0.5 MG, 1X/DAY
     Route: 048
     Dates: start: 20110501, end: 20110101

REACTIONS (3)
  - FEELING OF RELAXATION [None]
  - SEDATION [None]
  - ABNORMAL DREAMS [None]
